FAERS Safety Report 17122225 (Version 1)
Quarter: 2019Q4

REPORT INFORMATION
  Report Type: Spontaneous
  Country: NL (occurrence: NL)
  Receive Date: 20191206
  Receipt Date: 20191206
  Transmission Date: 20200122
  Serious: Yes (Life-Threatening, Hospitalization, Disabling)
  Sender: FDA-Public Use
  Company Number: NL-MYLANLABS-2019M1120676

PATIENT
  Age: 64 Year
  Sex: Male
  Weight: 72 kg

DRUGS (26)
  1. FLUCONAZOLE. [Interacting]
     Active Substance: FLUCONAZOLE
     Indication: INFECTION PROPHYLAXIS
     Dosage: 1MAAL PER WEEK 1 CAPSULE
     Route: 048
     Dates: start: 20181009
  2. TAMSULOSINE                        /01280301/ [Concomitant]
     Active Substance: TAMSULOSIN
     Dosage: 1DD1
  3. NATRIUMCHLORIDE [Concomitant]
     Active Substance: SODIUM CHLORIDE
     Dosage: UNK
  4. BUDESONIDE. [Concomitant]
     Active Substance: BUDESONIDE
     Dosage: UNK
  5. AMLODIPINE [Concomitant]
     Active Substance: AMLODIPINE BESYLATE
     Dosage: 1DD1
  6. PRIVIGEN [Concomitant]
     Active Substance: HUMAN IMMUNOGLOBULIN G
     Dosage: UNK
  7. ETORICOXIB. [Concomitant]
     Active Substance: ETORICOXIB
     Dosage: UNK
  8. OXYCODON [Concomitant]
     Active Substance: OXYCODONE
     Dosage: 2DD1
  9. MIRTAZAPINE. [Suspect]
     Active Substance: MIRTAZAPINE
     Indication: INSOMNIA
     Dosage: 1 DOSAGE FORM/7,5 MG
     Route: 048
     Dates: start: 20190611, end: 20190625
  10. RANITIDINE. [Concomitant]
     Active Substance: RANITIDINE
     Dosage: 2DD1
  11. OXYNORM [Concomitant]
     Active Substance: OXYCODONE HYDROCHLORIDE
     Dosage: 6DD1
  12. MACROGOL [Concomitant]
     Active Substance: POLYETHYLENE GLYCOLS
     Dosage: 3DD1
  13. ZOPICLON [Concomitant]
     Active Substance: ZOPICLONE
     Dosage: 1DD1
  14. MIRTAZAPINE SANDOZ [Concomitant]
     Active Substance: MIRTAZAPINE
     Dosage: 1DD1
  15. MAGNESIUM HYDROXIDE. [Concomitant]
     Active Substance: MAGNESIUM HYDROXIDE
     Dosage: 3DD2
  16. DERMOVATE [Concomitant]
     Active Substance: CLOBETASOL
     Dosage: 1DD1
  17. DULOXETINE. [Concomitant]
     Active Substance: DULOXETINE
     Dosage: 1DD1
  18. TRAMADOL. [Concomitant]
     Active Substance: TRAMADOL
     Dosage: 6DD1
  19. ALENDRONINEZUUR [Concomitant]
     Active Substance: ALENDRONIC ACID
     Dosage: 70 MILLIGRAM, QW
  20. AMOXI CLAV [Concomitant]
     Active Substance: AMOXICILLIN\CLAVULANATE POTASSIUM
     Dosage: 3DD1
     Dates: start: 20190629, end: 20190706
  21. CALCIUM CARBONATE AND VITAMIN D [Concomitant]
     Active Substance: CALCIUM CARBONATE\VITAMIN D
     Dosage: 1,25G/400IE (500MG CA)
  22. ADRENALINE                         /00003901/ [Concomitant]
     Active Substance: EPINEPHRINE
     Dosage: UNK
  23. MIRTAZAPINE. [Interacting]
     Active Substance: MIRTAZAPINE
     Dosage: 15 MG
     Route: 048
     Dates: start: 20190626, end: 20190629
  24. PREDNISOLON CF [Concomitant]
     Dosage: 2DD1
  25. VITAMIN K [Concomitant]
     Active Substance: PHYTONADIONE
     Dosage: UNK
  26. FLUCONAZOL AUROBINDO [Concomitant]
     Active Substance: FLUCONAZOLE
     Dosage: 150 MILLIGRAM, QW

REACTIONS (5)
  - Drug interaction [Recovering/Resolving]
  - Body temperature decreased [Recovering/Resolving]
  - Feeling cold [Recovering/Resolving]
  - Hyperhidrosis [Recovering/Resolving]
  - Somnolence [Recovering/Resolving]

NARRATIVE: CASE EVENT DATE: 20190629
